FAERS Safety Report 10378915 (Version 4)
Quarter: 2014Q4

REPORT INFORMATION
  Report Type: Report from Study
  Country: ES (occurrence: ES)
  Receive Date: 20140812
  Receipt Date: 20141010
  Transmission Date: 20150528
  Serious: Yes (Hospitalization, Disabling)
  Sender: FDA-Public Use
  Company Number: ES-BRISTOL-MYERS SQUIBB COMPANY-21236245

PATIENT
  Age: 65 Year
  Sex: Female
  Weight: 98 kg

DRUGS (1)
  1. BYDUREON [Suspect]
     Active Substance: EXENATIDE
     Indication: DIABETES MELLITUS
     Dosage: 1 DF = 1 INJECTION?ONGOING
     Route: 058
     Dates: start: 201407

REACTIONS (5)
  - Injection site erythema [Unknown]
  - Injection site nodule [Recovering/Resolving]
  - Candida infection [Recovering/Resolving]
  - Hyperglycaemia [Unknown]
  - Post procedural haemorrhage [Not Recovered/Not Resolved]

NARRATIVE: CASE EVENT DATE: 201407
